FAERS Safety Report 18097711 (Version 1)
Quarter: 2020Q3

REPORT INFORMATION
  Report Type: Report from Study
  Country: SG (occurrence: SG)
  Receive Date: 20200730
  Receipt Date: 20200730
  Transmission Date: 20201103
  Serious: Yes (Other)
  Sender: FDA-Public Use
  Company Number: SG-BAXTER-2020BAX015224

PATIENT

DRUGS (5)
  1. HOLOXAN FOR INJECTION 1G/25ML [Suspect]
     Active Substance: IFOSFAMIDE
     Indication: NON-SMALL CELL LUNG CANCER STAGE III
     Dosage: (NIP REGIMEN) ON DAY 1
     Route: 042
  2. MESNA. [Concomitant]
     Active Substance: MESNA
     Indication: PROPHYLAXIS
     Dosage: AT 60% OF THE IFOSFAMIDE DOSE
     Route: 042
  3. VINORELBINE [Suspect]
     Active Substance: VINORELBINE TARTRATE
     Indication: NON-SMALL CELL LUNG CANCER STAGE III
     Dosage: (NIP REGIMEN) ON DAYS 1 AND 8 AS SLOW BOLUS
     Route: 040
  4. CISPLATIN. [Suspect]
     Active Substance: CISPLATIN
     Route: 042
  5. CISPLATIN. [Suspect]
     Active Substance: CISPLATIN
     Indication: NON-SMALL CELL LUNG CANCER STAGE III
     Dosage: (NIP REGIMEN) ON DAY 1
     Route: 042

REACTIONS (1)
  - Oesophagitis [Unknown]
